FAERS Safety Report 7073324-X (Version None)
Quarter: 2010Q4

REPORT INFORMATION
  Report Type: 
  Country: None (occurrence: None)
  Receive Date: 20101029
  Receipt Date: 20100719
  Transmission Date: 20110411
  Serious: No
  Sender: FDA-Public Use
  Company Number: A0862230A

PATIENT
  Age: 76 Year
  Sex: Female

DRUGS (1)
  1. ADVAIR DISKUS 100/50 [Suspect]
     Route: 055
     Dates: start: 20090101

REACTIONS (4)
  - APHONIA [None]
  - PRODUCT QUALITY ISSUE [None]
  - PRODUCTIVE COUGH [None]
  - WHEEZING [None]
